FAERS Safety Report 4851891-1 (Version None)
Quarter: 2005Q4

REPORT INFORMATION
  Report Type: 
  Country: None (occurrence: None)
  Receive Date: 20051209
  Receipt Date: 20051124
  Transmission Date: 20060501
  Serious: Yes (Other)
  Sender: FDA-Public Use
  Company Number: 8013394

PATIENT
  Age: 13 Year
  Sex: Male
  Weight: 69 kg

DRUGS (3)
  1. KEPPRA [Suspect]
     Indication: GRAND MAL CONVULSION
     Dosage: 1500 MG 2/D PO
     Route: 048
     Dates: start: 20040501
  2. KEPPRA [Suspect]
     Indication: PARTIAL SEIZURES WITH SECONDARY GENERALISATION
     Dosage: 1500 MG 2/D PO
     Route: 048
     Dates: start: 20040501
  3. TEGRETOL [Concomitant]

REACTIONS (1)
  - THROMBOCYTOPENIA [None]
